FAERS Safety Report 9474651 (Version 2)
Quarter: 2013Q3

REPORT INFORMATION
  Report Type: Report from Study
  Country: CA (occurrence: CA)
  Receive Date: 20130823
  Receipt Date: 20130823
  Transmission Date: 20140515
  Serious: Yes (Hospitalization, Other)
  Sender: FDA-Public Use
  Company Number: CA-ABBOTT-13P-028-1132493-00

PATIENT
  Age: 63 Year
  Sex: Female

DRUGS (1)
  1. HUMIRA [Suspect]
     Indication: CROHN^S DISEASE
     Route: 058

REACTIONS (3)
  - Hemiplegia [Recovering/Resolving]
  - Gastrointestinal stoma complication [Recovering/Resolving]
  - Cerebrovascular accident [Recovering/Resolving]
